FAERS Safety Report 8773293 (Version 2)
Quarter: 2012Q4

REPORT INFORMATION
  Report Type: Report from Study
  Country: JP (occurrence: JP)
  Receive Date: 20120907
  Receipt Date: 20121010
  Transmission Date: 20130627
  Serious: Yes (Hospitalization)
  Sender: FDA-Public Use
  Company Number: JP-NOVOPROD-358925

PATIENT
  Age: 55 Year
  Sex: Male
  Weight: 81 kg

DRUGS (12)
  1. LIRAGLUTIDE FLEXPEN [Suspect]
     Indication: TYPE 2 DIABETES MELLITUS
     Dosage: 0.3 mg, qd
     Route: 058
     Dates: start: 20111110
  2. AMARYL [Concomitant]
     Dosage: 0.5 mg, qd
     Route: 048
     Dates: start: 20111110
  3. SAWADOL [Concomitant]
     Dosage: UNK
     Route: 048
  4. TANATRIL [Concomitant]
     Dosage: /po
     Route: 048
  5. MAINTATE [Concomitant]
     Dosage: UNK
     Route: 048
  6. BAYASPIRIN [Concomitant]
     Dosage: UNK
     Route: 048
  7. TAKEPRON [Concomitant]
     Dosage: UNK
     Route: 048
  8. JUVELA                             /00110502/ [Concomitant]
     Dosage: UNK
     Route: 048
  9. MUCOSOLVAN L [Concomitant]
     Dosage: UNK
     Route: 048
  10. ALOSENN                            /00476901/ [Concomitant]
     Dosage: UNK
     Route: 048
  11. PANALDINE [Concomitant]
     Dosage: UNK
     Route: 048
  12. CADUET [Concomitant]
     Dosage: UNK
     Route: 048

REACTIONS (1)
  - Transient ischaemic attack [Recovered/Resolved]
